FAERS Safety Report 13777990 (Version 1)
Quarter: 2017Q3

REPORT INFORMATION
  Report Type: Spontaneous
  Country: FR (occurrence: FR)
  Receive Date: 20170721
  Receipt Date: 20170721
  Transmission Date: 20171127
  Serious: Yes (Hospitalization)
  Sender: FDA-Public Use
  Company Number: FR-PFIZER INC-2017312491

PATIENT
  Age: 70 Year
  Sex: Female

DRUGS (5)
  1. ATARAX [Suspect]
     Active Substance: HYDROXYZINE HYDROCHLORIDE
     Dosage: 25 MG X 46, SINGLE
     Route: 048
     Dates: start: 20170428, end: 20170428
  2. SERESTA [Suspect]
     Active Substance: OXAZEPAM
     Dosage: 50 M G X 80, SINGLE
     Route: 048
     Dates: start: 20170428, end: 20170428
  3. PROZAC [Suspect]
     Active Substance: FLUOXETINE HYDROCHLORIDE
     Dosage: 69 DF, SINGLE
     Route: 048
     Dates: start: 20170428, end: 20170428
  4. ZOLPIDEM [Concomitant]
     Active Substance: ZOLPIDEM\ZOLPIDEM TARTRATE
     Dosage: 1 DF, SINGLE
     Dates: start: 20170428, end: 20170428
  5. LYRICA [Suspect]
     Active Substance: PREGABALIN
     Dosage: 25 MG X 103, SINGLE
     Route: 048
     Dates: start: 20170428, end: 20170428

REACTIONS (3)
  - Pneumonia aspiration [Recovered/Resolved]
  - Poisoning deliberate [Recovered/Resolved]
  - Coma [Recovered/Resolved]

NARRATIVE: CASE EVENT DATE: 20170428
